FAERS Safety Report 9382974 (Version 4)
Quarter: 2013Q3

REPORT INFORMATION
  Report Type: Report from Study
  Country: JP (occurrence: JP)
  Receive Date: 20130703
  Receipt Date: 20130806
  Transmission Date: 20140515
  Serious: Yes (Death, Hospitalization)
  Sender: FDA-Public Use
  Company Number: JP-AMGEN-JPNSP2012077791

PATIENT
  Age: 76 Year
  Sex: Female

DRUGS (4)
  1. ROMIPLOSTIM [Suspect]
     Indication: IMMUNE THROMBOCYTOPENIC PURPURA
     Dosage: 10 MUG/KG, UNK
     Route: 058
  2. SEFIROM [Concomitant]
     Dosage: 1 G, BID
     Route: 042
     Dates: start: 20130521, end: 20130526
  3. MEROPEN                            /01250501/ [Concomitant]
     Dosage: 0.5 G, BID
     Route: 042
     Dates: start: 20130527, end: 20130618
  4. FINIBAX [Concomitant]
     Dosage: 0.25 G, BID
     Route: 041
     Dates: start: 20130620, end: 20130626

REACTIONS (3)
  - Interstitial lung disease [Fatal]
  - Liver disorder [Recovering/Resolving]
  - Therapeutic response decreased [Recovered/Resolved]
